FAERS Safety Report 22174799 (Version 4)
Quarter: 2024Q1

REPORT INFORMATION
  Report Type: Report from Study
  Country: US (occurrence: US)
  Receive Date: 20230405
  Receipt Date: 20240213
  Transmission Date: 20240410
  Serious: No
  Sender: FDA-Public Use
  Company Number: US-002147023-NVSC2023US078678

PATIENT
  Sex: Female

DRUGS (1)
  1. ILARIS [Suspect]
     Active Substance: CANAKINUMAB
     Indication: Pyrexia
     Dosage: 150 MG, QMO (EVERY 4 WEEKS)
     Route: 058
     Dates: start: 20230307

REACTIONS (2)
  - Rhinorrhoea [Unknown]
  - Inappropriate schedule of product administration [Unknown]
